FAERS Safety Report 7531151-0 (Version None)
Quarter: 2011Q2

REPORT INFORMATION
  Report Type: 
  Country: None (occurrence: None)
  Receive Date: 20110527
  Receipt Date: 20110518
  Transmission Date: 20111010
  Serious: Yes (Other)
  Sender: FDA-Public Use
  Company Number: 2011SP016234

PATIENT
  Age: 23 Year
  Sex: Female

DRUGS (7)
  1. BETAMETHASONE SODIUM PHOSPHATE [Suspect]
     Indication: PRODUCT USED FOR UNKNOWN INDICATION
     Dosage: 1 DF;QD
     Dates: start: 20060301, end: 20060301
  2. BETAMETHASONE SODIUM PHOSPHATE [Suspect]
     Indication: PRODUCT USED FOR UNKNOWN INDICATION
     Dosage: 1 DF;QD
     Dates: end: 20081006
  3. BETAMETHASONE SODIUM PHOSPHATE [Suspect]
     Indication: EYE INFLAMMATION
     Dosage: 6 DF;QD
     Dates: start: 20060303, end: 20060609
  4. RINDERON A (BETAMETHASONE SODIUM PHOPHATE/FRADIOMYCIN SULFATE /0020360 [Suspect]
     Indication: EYE INFLAMMATION
     Dosage: 0.1 GM;QD
     Dates: start: 20060303, end: 20060320
  5. FLUOROMETHOLONE [Suspect]
     Indication: EYE INFLAMMATION
  6. FLOMOX (CEFCAPENE PIVOXIL HYDROCHLORIDE) [Suspect]
     Indication: PRODUCT USED FOR UNKNOWN INDICATION
     Dates: start: 20060201, end: 20060301
  7. PREDNISOLONE [Suspect]
     Indication: INFLAMMATION
     Dates: start: 20060301, end: 20060501

REACTIONS (5)
  - VISUAL FIELD DEFECT [None]
  - OCULOMUCOCUTANEOUS SYNDROME [None]
  - NO THERAPEUTIC RESPONSE [None]
  - GLAUCOMA [None]
  - STEVENS-JOHNSON SYNDROME [None]
